FAERS Safety Report 8907327 (Version 3)
Quarter: 2013Q1

REPORT INFORMATION
  Report Type: Spontaneous
  Country: FR (occurrence: FR)
  Receive Date: 20121114
  Receipt Date: 20130312
  Transmission Date: 20140127
  Serious: Yes (Other)
  Sender: FDA-Public Use
  Company Number: FR-SP-2012-10383

PATIENT
  Age: 71 Year
  Sex: Male

DRUGS (10)
  1. IMMUCYST 81 MG [Suspect]
     Indication: BLADDER CANCER
     Route: 043
     Dates: start: 20120928, end: 20120928
  2. BISOPROLOL [Concomitant]
     Route: 048
  3. TAHOR [Concomitant]
     Route: 048
  4. ALLOPURINOL [Concomitant]
     Route: 048
  5. HYPERIUM [Concomitant]
     Route: 048
  6. LASILIX SPECIAL [Concomitant]
     Route: 048
  7. KARDEGIC [Concomitant]
     Route: 048
  8. INEXIUM [Concomitant]
     Route: 048
  9. LANTUS [Concomitant]
     Route: 058
  10. HUMALOG [Concomitant]
     Route: 058

REACTIONS (5)
  - Disseminated tuberculosis [Recovering/Resolving]
  - Pulmonary tuberculosis [Recovering/Resolving]
  - Pyrexia [Recovering/Resolving]
  - Cough [Recovering/Resolving]
  - Night sweats [Recovering/Resolving]
